FAERS Safety Report 6803104-9 (Version None)
Quarter: 2010Q2

REPORT INFORMATION
  Report Type: 
  Country: None (occurrence: None)
  Receive Date: 20100628
  Receipt Date: 20100617
  Transmission Date: 20101027
  Serious: Yes (Hospitalization)
  Sender: FDA-Public Use
  Company Number: A0802648A

PATIENT
  Age: 46 Year
  Sex: Male
  Weight: 102.3 kg

DRUGS (8)
  1. AVANDIA [Suspect]
     Dosage: 4MG TWICE PER DAY
     Route: 048
     Dates: start: 20040301, end: 20070701
  2. AVANDAMET [Suspect]
     Route: 048
  3. METFORMIN HCL [Concomitant]
  4. LIPITOR [Concomitant]
  5. HYZAAR [Concomitant]
  6. LISINOPRIL [Concomitant]
  7. METOPROLOL [Concomitant]
  8. TRICOR [Concomitant]

REACTIONS (8)
  - ASTHENIA [None]
  - BALANCE DISORDER [None]
  - BRAIN STEM STROKE [None]
  - CARDIAC FAILURE CONGESTIVE [None]
  - CONDITION AGGRAVATED [None]
  - CORONARY ARTERY DISEASE [None]
  - HEADACHE [None]
  - HYPOAESTHESIA [None]
